FAERS Safety Report 7562933-7 (Version None)
Quarter: 2011Q2

REPORT INFORMATION
  Report Type: 
  Country: None (occurrence: None)
  Receive Date: 20110525
  Receipt Date: 20110407
  Transmission Date: 20111010
  Serious: No
  Sender: FDA-Public Use
  Company Number: 326404

PATIENT
  Age: 58 Year
  Sex: Male

DRUGS (1)
  1. VICTOZA [Suspect]
     Indication: TYPE 2 DIABETES MELLITUS
     Dosage: 1.2 MG, QD, SUBCUTANEOUS
     Route: 058
     Dates: start: 20110401

REACTIONS (4)
  - INSOMNIA [None]
  - ASTHENIA [None]
  - LACRIMATION INCREASED [None]
  - INCORRECT PRODUCT STORAGE [None]
